FAERS Safety Report 9131850 (Version 3)
Quarter: 2013Q2

REPORT INFORMATION
  Report Type: Spontaneous
  Country: DE (occurrence: DE)
  Receive Date: 20130301
  Receipt Date: 20130620
  Transmission Date: 20140414
  Serious: Yes (Life-Threatening, Hospitalization, Other)
  Sender: FDA-Public Use
  Company Number: DE-BAYER-2013-006933

PATIENT
  Age: 82 Year
  Sex: Female
  Weight: 83 kg

DRUGS (15)
  1. XARELTO [Suspect]
     Indication: THROMBOSIS PROPHYLAXIS
     Dosage: 10 MG, ONCE
     Dates: start: 20130114
  2. XARELTO [Interacting]
     Indication: HIP ARTHROPLASTY
  3. ASS [Interacting]
     Indication: CEREBROVASCULAR ACCIDENT
     Dosage: 100 MG, UNK
  4. ASS [Interacting]
     Indication: CORONARY ARTERY DISEASE
     Dosage: 100 MG, QD
  5. ASS [Interacting]
     Indication: STENT PLACEMENT
     Dosage: 100 MG, QD
  6. HCT [Suspect]
     Indication: CARDIAC FAILURE
     Dosage: 25 MG, QD
  7. ARCOXIA [Concomitant]
     Dosage: 1 DF, QD
  8. PANTOZOL [Concomitant]
     Dosage: 1 DF, QD
  9. TRAMAL [Concomitant]
     Dosage: 1 DF, BID
  10. METOPROLOL [Concomitant]
     Indication: CORONARY ARTERY DISEASE
     Dosage: 50 MG, BID
  11. METOPROLOL [Concomitant]
     Indication: CARDIAC FAILURE
  12. LISINOPRIL [Concomitant]
     Indication: CORONARY ARTERY DISEASE
     Dosage: 5 MG, QD
  13. LISINOPRIL [Concomitant]
     Indication: CARDIAC FAILURE
  14. REPAGLINIDE [Concomitant]
     Indication: TYPE 2 DIABETES MELLITUS
     Dosage: 5 MG, BID
  15. SIMVASTATIN [Concomitant]
     Indication: CARDIAC FAILURE
     Dosage: 40 MG, QD

REACTIONS (11)
  - Lower gastrointestinal haemorrhage [Recovered/Resolved]
  - Haematochezia [Recovered/Resolved]
  - Melaena [Recovered/Resolved]
  - Haematemesis [Recovered/Resolved]
  - Malaise [Recovered/Resolved]
  - Blood pressure diastolic decreased [Recovered/Resolved]
  - Asthenia [Recovered/Resolved]
  - Pallor [Recovered/Resolved]
  - Hyperhidrosis [Recovered/Resolved]
  - Haemorrhagic anaemia [Recovered/Resolved]
  - Drug interaction [None]
